FAERS Safety Report 5316037-4 (Version None)
Quarter: 2007Q2

REPORT INFORMATION
  Report Type: 
  Country: None (occurrence: None)
  Receive Date: 20070503
  Receipt Date: 20070424
  Transmission Date: 20071010
  Serious: Yes (Death, Other)
  Sender: FDA-Public Use
  Company Number: US-ELI_LILLY_AND_COMPANY-USA020921501

PATIENT
  Age: 59 Year
  Sex: Male

DRUGS (2)
  1. ILETIN [Suspect]
     Indication: DIABETES MELLITUS
     Dosage: UNK, UNKNOWN
  2. ILETIN [Suspect]
     Dosage: UNK, UNKNOWN
     Route: 058

REACTIONS (2)
  - CARDIAC FAILURE [None]
  - TUBERCULOSIS [None]
